FAERS Safety Report 6514299-9 (Version None)
Quarter: 2009Q4

REPORT INFORMATION
  Report Type: 
  Country: None (occurrence: None)
  Receive Date: 20091223
  Receipt Date: 20091217
  Transmission Date: 20100525
  Serious: Yes (Hospitalization, Other)
  Sender: FDA-Public Use
  Company Number: US-RB-027006-09

PATIENT
  Age: 31 Year
  Sex: Male

DRUGS (2)
  1. SUBOXONE [Suspect]
     Route: 060
     Dates: start: 20091114
  2. SUBOXONE [Suspect]
     Route: 060
     Dates: start: 20090701, end: 20091109

REACTIONS (3)
  - ASTHMA [None]
  - INFLUENZA [None]
  - RESPIRATORY ARREST [None]
